FAERS Safety Report 7412018-5 (Version None)
Quarter: 2011Q2

REPORT INFORMATION
  Report Type: 
  Country: None (occurrence: None)
  Receive Date: 20110408
  Receipt Date: 20110408
  Transmission Date: 20111010
  Serious: Yes (Hospitalization)
  Sender: FDA-Public Use
  Company Number: None

PATIENT
  Age: 66 Year
  Sex: Male

DRUGS (1)
  1. OXYCODONE HCL [Suspect]
     Dates: start: 20101226

REACTIONS (3)
  - SOMNOLENCE [None]
  - CONFUSIONAL STATE [None]
  - SEDATION [None]
